FAERS Safety Report 9281442 (Version 2)
Quarter: 2013Q2

REPORT INFORMATION
  Report Type: Spontaneous
  Country: US (occurrence: US)
  Receive Date: 20130509
  Receipt Date: 20130523
  Transmission Date: 20140414
  Serious: No
  Sender: FDA-Public Use
  Company Number: US-B.I. PHARMACEUTICALS,INC./RIDGEFIELD-2013-BI-12738BP

PATIENT
  Age: 66 Year
  Sex: Female

DRUGS (14)
  1. SPIRIVA [Suspect]
     Indication: CHRONIC OBSTRUCTIVE PULMONARY DISEASE
     Dosage: 18 MCG
     Route: 055
     Dates: start: 201301
  2. ISOSORBIDE [Concomitant]
     Dosage: 60 MG
     Route: 048
  3. DIAZEPAM [Concomitant]
     Route: 048
  4. DIOVAN [Concomitant]
     Indication: HYPERTENSION
     Dosage: 320 MG
     Route: 048
  5. PRILOSEC [Concomitant]
     Route: 048
  6. CARVEDILOL [Concomitant]
     Dosage: 6.25 MG
     Route: 048
  7. ALIGN [Concomitant]
     Route: 048
  8. CENTRUM SILVER FOR WOMEN [Concomitant]
     Route: 048
  9. CLOPIDOGREL [Concomitant]
     Dosage: 75 MG
     Route: 048
  10. ASPIRIN [Concomitant]
     Dosage: 325 MG
     Route: 048
  11. FLAXSEED [Concomitant]
     Route: 048
  12. SPIRONOLACTONE [Concomitant]
     Dosage: 25 MG
     Route: 048
  13. GARLIC [Concomitant]
     Route: 048
  14. MEGARED [Concomitant]
     Dosage: 500 MG
     Route: 048

REACTIONS (3)
  - Dyspnoea [Not Recovered/Not Resolved]
  - Product quality issue [Unknown]
  - Product quality issue [Unknown]
